FAERS Safety Report 10411645 (Version 1)
Quarter: 2014Q3

REPORT INFORMATION
  Report Type: Spontaneous
  Country: FR (occurrence: FR)
  Receive Date: 20140827
  Receipt Date: 20140827
  Transmission Date: 20150326
  Serious: Yes (Hospitalization)
  Sender: FDA-Public Use
  Company Number: FR-ROCHE-1452439

PATIENT
  Age: 90 Year
  Sex: Female

DRUGS (10)
  1. COUMADINE [Concomitant]
     Active Substance: WARFARIN SODIUM
  2. LEVOTHYROX [Concomitant]
     Active Substance: LEVOTHYROXINE
  3. FLAGYL [Suspect]
     Active Substance: METRONIDAZOLE\METRONIDAZOLE HYDROCHLORIDE
     Indication: PRODUCT USED FOR UNKNOWN INDICATION
     Route: 048
     Dates: start: 20140526, end: 20140602
  4. BISOCE [Concomitant]
     Active Substance: BISOPROLOL
  5. ROCEPHINE [Suspect]
     Active Substance: CEFTRIAXONE SODIUM
     Indication: PRODUCT USED FOR UNKNOWN INDICATION
     Route: 065
     Dates: start: 20140526, end: 20140602
  6. VANCOMYCINE [Suspect]
     Active Substance: VANCOMYCIN
     Indication: PRODUCT USED FOR UNKNOWN INDICATION
     Route: 065
     Dates: start: 20140526, end: 20140602
  7. DAFALGAN [Concomitant]
     Active Substance: ACETAMINOPHEN
  8. SERESTA [Concomitant]
     Active Substance: OXAZEPAM
  9. STILNOX [Concomitant]
     Active Substance: ZOLPIDEM TARTRATE
  10. CALCIPARINE [Concomitant]
     Active Substance: HEPARIN CALCIUM

REACTIONS (1)
  - Acute generalised exanthematous pustulosis [Recovered/Resolved]

NARRATIVE: CASE EVENT DATE: 20140604
